FAERS Safety Report 8111175-5 (Version None)
Quarter: 2012Q1

REPORT INFORMATION
  Report Type: 
  Country: None (occurrence: None)
  Receive Date: 20120203
  Receipt Date: 20110601
  Transmission Date: 20120608
  Serious: No
  Sender: FDA-Public Use
  Company Number: US-GLAXOSMITHKLINE-A0929892A

PATIENT
  Age: 20 Year
  Sex: Female

DRUGS (2)
  1. ADDERALL XR 10 [Concomitant]
     Dosage: 10MGD PER DAY
     Route: 048
  2. LAMICTAL [Suspect]
     Indication: BIPOLAR DISORDER
     Dosage: 25MG PER DAY
     Route: 048
     Dates: start: 20110519, end: 20110601

REACTIONS (3)
  - TREATMENT NONCOMPLIANCE [None]
  - RASH GENERALISED [None]
  - DRUG ADMINISTRATION ERROR [None]
